FAERS Safety Report 9384412 (Version 2)
Quarter: 2013Q3

REPORT INFORMATION
  Report Type: Spontaneous
  Country: DE (occurrence: DE)
  Receive Date: 20130705
  Receipt Date: 20130710
  Transmission Date: 20140515
  Serious: Yes (Hospitalization)
  Sender: FDA-Public Use
  Company Number: GXKR2013DE002317

PATIENT
  Age: 48 Year
  Sex: Male

DRUGS (1)
  1. VALSARTAN 1 A PHARMA PLUS [Suspect]
     Indication: HYPERTENSION
     Dosage: 160 MG, BID
     Route: 048
     Dates: start: 20130224

REACTIONS (1)
  - Syncope [Recovered/Resolved]
